FAERS Safety Report 8617126-9 (Version None)
Quarter: 2012Q3

REPORT INFORMATION
  Report Type: 
  Country: None (occurrence: None)
  Receive Date: 20120823
  Receipt Date: 20120820
  Transmission Date: 20120928
  Serious: No
  Sender: FDA-Public Use
  Company Number: US-PFIZER INC-2012204412

PATIENT
  Age: 55 Year
  Sex: Female
  Weight: 112 kg

DRUGS (3)
  1. GABAPENTIN [Suspect]
     Dosage: 400 MG, 4X/DAY
     Route: 048
  2. GABAPENTIN [Suspect]
     Indication: NEUROPATHY PERIPHERAL
     Dosage: 100 MG, UNK
     Route: 048
     Dates: start: 20100101
  3. LEVOTHROID [Concomitant]
     Indication: HYPERTHYROIDISM
     Dosage: UNK

REACTIONS (5)
  - FURUNCLE [None]
  - PAIN [None]
  - MUSCULOSKELETAL STIFFNESS [None]
  - LIMB DISCOMFORT [None]
  - BURNING SENSATION [None]
